FAERS Safety Report 17939918 (Version 2)
Quarter: 2020Q3

REPORT INFORMATION
  Report Type: Spontaneous
  Country: US (occurrence: US)
  Receive Date: 20200624
  Receipt Date: 20200708
  Transmission Date: 20201103
  Serious: Yes (Hospitalization, Other)
  Sender: FDA-Public Use
  Company Number: US-ALLERGAN-2024098US

PATIENT
  Sex: Female

DRUGS (2)
  1. NORCO [Suspect]
     Active Substance: ACETAMINOPHEN\HYDROCODONE BITARTRATE
     Indication: PAIN
     Dosage: 7.5 MG, UP TO 8 OR 10
     Dates: start: 1995
  2. KLONOPIN [Concomitant]
     Active Substance: CLONAZEPAM

REACTIONS (10)
  - Intentional overdose [Unknown]
  - Crying [Unknown]
  - Impaired work ability [Unknown]
  - Suicidal ideation [Not Recovered/Not Resolved]
  - Anxiety [Not Recovered/Not Resolved]
  - Depression [Not Recovered/Not Resolved]
  - Dependence [Unknown]
  - Loss of employment [Unknown]
  - Insomnia [Not Recovered/Not Resolved]
  - Suicide attempt [Unknown]
